FAERS Safety Report 5116023-3 (Version None)
Quarter: 2006Q3

REPORT INFORMATION
  Report Type: 
  Country: None (occurrence: None)
  Receive Date: 20060927
  Receipt Date: 20060223
  Transmission Date: 20061208
  Serious: Yes (Other)
  Sender: FDA-Public Use
  Company Number: US-BRISTOL-MYERS SQUIBB COMPANY-13294566

PATIENT
  Age: 29 Year
  Sex: Female

DRUGS (1)
  1. DEFINITY [Suspect]
     Indication: CARDIOVASCULAR EVALUATION
     Route: 040
     Dates: start: 20060222, end: 20060222

REACTIONS (2)
  - FLUSHING [None]
  - TACHYCARDIA [None]
